FAERS Safety Report 5469230-4 (Version None)
Quarter: 2007Q3

REPORT INFORMATION
  Report Type: 
  Country: None (occurrence: None)
  Receive Date: 20070925
  Receipt Date: 20070925
  Transmission Date: 20080115
  Serious: Yes (Life-Threatening, Hospitalization, Disabling, Other)
  Sender: FDA-Public Use
  Company Number: None

PATIENT
  Age: 22 Year
  Sex: Female
  Weight: 71.2147 kg

DRUGS (1)
  1. LEVAQUIN [Suspect]
     Indication: NAIL INFECTION
     Dosage: 500 MIL  2 TIMES A DAY  PO
     Route: 048
     Dates: start: 20051114, end: 20051119

REACTIONS (11)
  - ANOREXIA [None]
  - ANXIETY [None]
  - DEREALISATION [None]
  - DISSOCIATION [None]
  - FEELING ABNORMAL [None]
  - FLIGHT OF IDEAS [None]
  - HALLUCINATION, AUDITORY [None]
  - INSOMNIA [None]
  - PANIC ATTACK [None]
  - SUICIDAL IDEATION [None]
  - TINNITUS [None]
